FAERS Safety Report 5476944-9 (Version None)
Quarter: 2007Q3

REPORT INFORMATION
  Report Type: 
  Country: None (occurrence: None)
  Receive Date: 20070831
  Receipt Date: 20070502
  Transmission Date: 20080115
  Serious: Yes (Hospitalization)
  Sender: FDA-Public Use
  Company Number: PHEH2007US05879

PATIENT
  Age: 64 Year
  Sex: Male
  Weight: 68.5 kg

DRUGS (3)
  1. EXJADE [Suspect]
     Indication: IRON OVERLOAD
     Dosage: 1250MG, QD, ORAL
     Route: 048
     Dates: start: 20061228, end: 20070214
  2. ASPIRIN [Concomitant]
  3. REVLIMID [Concomitant]

REACTIONS (11)
  - ALANINE AMINOTRANSFERASE INCREASED [None]
  - ANAEMIA [None]
  - ASPARTATE AMINOTRANSFERASE INCREASED [None]
  - ASTHENIA [None]
  - BILIRUBIN CONJUGATED INCREASED [None]
  - BLOOD ALKALINE PHOSPHATASE INCREASED [None]
  - DYSPNOEA [None]
  - HEPATIC ENZYME INCREASED [None]
  - HEPATITIS ACUTE [None]
  - JAUNDICE [None]
  - SERUM FERRITIN INCREASED [None]
